FAERS Safety Report 7751637-3 (Version None)
Quarter: 2011Q3

REPORT INFORMATION
  Report Type: 
  Country: None (occurrence: None)
  Receive Date: 20110914
  Receipt Date: 20110901
  Transmission Date: 20111222
  Serious: Yes (Other)
  Sender: FDA-Public Use
  Company Number: AU-GENENTECH-324135

PATIENT
  Sex: Male

DRUGS (2)
  1. LUCENTIS [Suspect]
     Dosage: 0.05 ML, UNKNOWN
     Route: 065
     Dates: start: 20110831
  2. LUCENTIS [Suspect]
     Indication: MACULAR DEGENERATION
     Dosage: 0.05 ML, UNKNOWN
     Route: 031
     Dates: start: 20100101

REACTIONS (2)
  - DRUG INEFFECTIVE [None]
  - VISUAL IMPAIRMENT [None]
